FAERS Safety Report 11852345 (Version 2)
Quarter: 2016Q1

REPORT INFORMATION
  Report Type: Spontaneous
  Country: US (occurrence: US)
  Receive Date: 20151218
  Receipt Date: 20160113
  Transmission Date: 20160526
  Serious: Yes (Other)
  Sender: FDA-Public Use
  Company Number: US-LPDUSPRD-20151016

PATIENT
  Age: 25 Year
  Sex: Female

DRUGS (8)
  1. METOPROLOL INJECTION, USP (1355-10) [Suspect]
     Active Substance: METOPROLOL
     Dosage: 5 MG X 2
     Route: 042
  2. HYDROCORTISONE. [Concomitant]
     Active Substance: HYDROCORTISONE
     Dosage: 100 MG IV EVERY 8 HOURS
     Route: 065
  3. PROPYLTHIOURACIL. [Concomitant]
     Active Substance: PROPYLTHIOURACIL
     Dosage: 200 MG EVERY 6 HOURS
     Route: 065
  4. ESMOLOL HYDROCHLORIDE INJECTION (0517-1810-01) [Suspect]
     Active Substance: ESMOLOL HYDROCHLORIDE
     Dosage: DOSE NOT STATED
     Route: 042
  5. LUGOL [Concomitant]
     Active Substance: IODINE\POTASSIUM IODIDE
     Dosage: 10 DROPS EVERY 8 HOURS
     Route: 065
  6. LABETOLOL [Concomitant]
     Active Substance: LABETALOL HYDROCHLORIDE
     Dosage: DOSE NOT STATED
     Route: 065
  7. METHIMAZOLE. [Concomitant]
     Active Substance: METHIMAZOLE
     Dosage: DOSE NOT STATED
     Route: 065
  8. METOPROLOL. [Suspect]
     Active Substance: METOPROLOL
     Dosage: 50 MG
     Route: 048

REACTIONS (3)
  - Hypotension [Unknown]
  - Cardiogenic shock [Unknown]
  - Cardiac arrest [Unknown]
